FAERS Safety Report 9157518 (Version 1)
Quarter: 2013Q1

REPORT INFORMATION
  Report Type: Spontaneous
  Country: DE (occurrence: DE)
  Receive Date: 20130312
  Receipt Date: 20130312
  Transmission Date: 20140127
  Serious: Yes (Hospitalization)
  Sender: FDA-Public Use
  Company Number: DE-ROXANE LABORATORIES, INC.-2013-RO-00350RO

PATIENT
  Age: 54 Year
  Sex: Female

DRUGS (1)
  1. LITHIUM CARBONATE [Suspect]
     Indication: BIPOLAR DISORDER

REACTIONS (3)
  - Nephropathy toxic [Recovered/Resolved]
  - Hyperparathyroidism [Recovered/Resolved]
  - Hypercalcaemia [Recovered/Resolved]
